FAERS Safety Report 14108501 (Version 6)
Quarter: 2018Q1

REPORT INFORMATION
  Report Type: Spontaneous
  Country: JP (occurrence: JP)
  Receive Date: 20171019
  Receipt Date: 20180309
  Transmission Date: 20180508
  Serious: Yes (Death, Other)
  Sender: FDA-Public Use
  Company Number: JP-AMGEN-JPNSP2017158477

PATIENT
  Age: 64 Year
  Sex: Male
  Weight: 66 kg

DRUGS (6)
  1. NASATEAM [Concomitant]
     Dosage: 1200 MG, UNK
     Dates: start: 2013
  2. VITAMEDIN [Concomitant]
     Active Substance: CYANOCOBALAMIN\PYRIDOXINE HYDROCHLORIDE\THIAMINE
     Dosage: 2 DF, UNK
     Dates: start: 2013
  3. REPATHA [Suspect]
     Active Substance: EVOLOCUMAB
     Indication: TYPE IIA HYPERLIPIDAEMIA
     Dosage: 140 MG, Q2WK
     Route: 058
     Dates: start: 20170607, end: 20170830
  4. FEBURIC [Concomitant]
     Active Substance: FEBUXOSTAT
     Dosage: 20 MG, UNK
     Dates: start: 2013
  5. URALYT [Concomitant]
     Active Substance: POTASSIUM CITRATE\TRISODIUM CITRATE DIHYDRATE
     Dosage: 2 DF, UNK
     Dates: start: 2013
  6. IRBETAN [Concomitant]
     Active Substance: IRBESARTAN
     Dosage: 100 MG, UNK
     Dates: start: 2013

REACTIONS (4)
  - Hallucination, visual [Not Recovered/Not Resolved]
  - Delusion [Not Recovered/Not Resolved]
  - Hallucination, auditory [Not Recovered/Not Resolved]
  - Completed suicide [Fatal]

NARRATIVE: CASE EVENT DATE: 20170920
